FAERS Safety Report 21593061 (Version 1)
Quarter: 2022Q4

REPORT INFORMATION
  Report Type: Spontaneous
  Country: US (occurrence: None)
  Receive Date: 20221111
  Receipt Date: 20221111
  Transmission Date: 20230113
  Serious: Yes (Hospitalization)
  Sender: FDA-Public Use
  Company Number: None

PATIENT
  Age: 32 Month
  Sex: Female

DRUGS (1)
  1. SILDENAFIL [Suspect]
     Active Substance: SILDENAFIL
     Indication: Pulmonary arterial hypertension
     Dosage: 1 ML THREE TIMES DAILY PO?
     Route: 048
     Dates: start: 20220721

REACTIONS (4)
  - Patent ductus arteriosus repair [None]
  - Pulmonary artery therapeutic procedure [None]
  - Pulmonary angioplasty [None]
  - Stent placement [None]

NARRATIVE: CASE EVENT DATE: 20221107
